FAERS Safety Report 10624140 (Version 1)
Quarter: 2014Q4

REPORT INFORMATION
  Report Type: Spontaneous
  Country: US (occurrence: US)
  Receive Date: 20141203
  Receipt Date: 20141203
  Transmission Date: 20150529
  Serious: No
  Sender: FDA-Public Use
  Company Number: US-SA-2014SA085271

PATIENT
  Sex: Female

DRUGS (2)
  1. PHOSLO [Concomitant]
     Active Substance: CALCIUM ACETATE
     Dates: end: 201406
  2. RENVELA [Suspect]
     Active Substance: SEVELAMER CARBONATE
     Indication: BLOOD PHOSPHORUS ABNORMAL
     Dosage: RENVELA 800 MG TABLET ; THREE TIMES A DAY WITH MEALS
     Route: 048
     Dates: start: 201406, end: 201406

REACTIONS (1)
  - Hyperphosphataemia [Unknown]

NARRATIVE: CASE EVENT DATE: 201406
